FAERS Safety Report 22041701 (Version 2)
Quarter: 2023Q1

REPORT INFORMATION
  Report Type: Spontaneous
  Country: US (occurrence: US)
  Receive Date: 20230227
  Receipt Date: 20230329
  Transmission Date: 20230417
  Serious: Yes (Other)
  Sender: FDA-Public Use
  Company Number: US-BAYER-2023A024286

PATIENT
  Age: 68 Year
  Sex: Male

DRUGS (1)
  1. JIVI [Suspect]
     Active Substance: DAMOCTOCOG ALFA PEGOL
     Indication: Factor VIII deficiency
     Dosage: 3600 IU, Q3WK
     Route: 042
     Dates: start: 20230118

REACTIONS (3)
  - Haemarthrosis [Recovered/Resolved]
  - Pneumonia [None]
  - Joint injury [Recovered/Resolved]

NARRATIVE: CASE EVENT DATE: 20230217
